FAERS Safety Report 6541276-4 (Version None)
Quarter: 2010Q1

REPORT INFORMATION
  Report Type: 
  Country: None (occurrence: None)
  Receive Date: 20100118
  Receipt Date: 20100112
  Transmission Date: 20100710
  Serious: Yes (Death, Hospitalization)
  Sender: FDA-Public Use
  Company Number: US-ELI_LILLY_AND_COMPANY-US200912004228

PATIENT
  Sex: Female

DRUGS (14)
  1. BYETTA [Suspect]
     Indication: TYPE 2 DIABETES MELLITUS
     Dosage: 10 UG, 2/D
     Dates: start: 20061101, end: 20061201
  2. BYETTA [Suspect]
     Dosage: 10 UG, 2/D
     Route: 058
     Dates: start: 20061201
  3. ACTOS [Concomitant]
     Dosage: 30 MG, DAILY (1/D)
     Route: 048
  4. CAPTOPRIL [Concomitant]
     Dosage: 12.5 MG, 2/D
  5. GLIMEPIRIDE [Concomitant]
     Dosage: 4 MG, 2/D
     Route: 048
  6. LORAZEPAM [Concomitant]
     Dosage: UNK, UNKNOWN
  7. ULTRAM [Concomitant]
     Dosage: UNK, UNKNOWN
  8. FOSAMAX [Concomitant]
     Dosage: UNK, UNKNOWN
  9. NEXIUM [Concomitant]
     Dosage: UNK, UNKNOWN
  10. CYMBALTA [Concomitant]
     Dosage: UNK, UNKNOWN
  11. BUMEX [Concomitant]
     Dosage: UNK, UNKNOWN
  12. TRAZODONE [Concomitant]
     Dosage: UNK, UNKNOWN
  13. TOPROL-XL [Concomitant]
     Dosage: UNK, UNKNOWN
  14. SINGULAIR [Concomitant]
     Dosage: UNK, UNKNOWN

REACTIONS (1)
  - PANCREATIC CARCINOMA [None]
